FAERS Safety Report 9302846 (Version 1)
Quarter: 2013Q2

REPORT INFORMATION
  Report Type: Spontaneous
  Country: FR (occurrence: None)
  Receive Date: 20130516
  Receipt Date: 20130516
  Transmission Date: 20140414
  Serious: Yes (Hospitalization)
  Sender: FDA-Public Use
  Company Number: 2012000305

PATIENT
  Age: 51 Year
  Sex: Female

DRUGS (5)
  1. ACEON (PERINDOPRIL ERBUMINE) TABLET [Suspect]
     Route: 048
     Dates: start: 201004, end: 201101
  2. MAGNE-B6 (MAGNESIUM LACTATE, PYRIDOXINE HYDROCHLORIDE) [Concomitant]
  3. TIMOFEROL (ASCORBIC ACID, FERROUS SULFATE) [Concomitant]
  4. KESTIN (EBASTINE) [Concomitant]
  5. RUPATADINE FUMARATE (RUPATADINE FUMARATE) (UNKNOWN) (RUPATADINE FUMARATE) [Concomitant]

REACTIONS (3)
  - Hypogammaglobulinaemia [None]
  - Angioedema [None]
  - Urticaria [None]
